FAERS Safety Report 25024108 (Version 1)
Quarter: 2025Q1

REPORT INFORMATION
  Report Type: Spontaneous
  Country: US (occurrence: US)
  Receive Date: 20250228
  Receipt Date: 20250228
  Transmission Date: 20250409
  Serious: No
  Sender: ALMUS
  Company Number: US-ALMIRALL-US-2025-0501

PATIENT
  Sex: Female

DRUGS (1)
  1. KLISYRI [Suspect]
     Active Substance: TIRBANIBULIN

REACTIONS (4)
  - Erythema [Not Recovered/Not Resolved]
  - Skin burning sensation [Unknown]
  - Pruritus [Unknown]
  - Urticaria [Unknown]
